FAERS Safety Report 8758362 (Version 1)
Quarter: 2012Q4

REPORT INFORMATION
  Report Type: Spontaneous
  Country: US (occurrence: None)
  Receive Date: 20120906
  Receipt Date: 20120906
  Transmission Date: 20130627
  Serious: No
  Sender: FDA-Public Use
  Company Number: DL2012-0731

PATIENT
  Age: 25 Year
  Sex: Female

DRUGS (4)
  1. MIFEPRISTONE [Suspect]
     Route: 048
     Dates: start: 20120517
  2. MISOPROSTOL [Suspect]
     Route: 002
     Dates: start: 20120518
  3. MISOPROSTOL [Suspect]
     Dates: start: 20120519
  4. DOXYCYCLINE [Concomitant]

REACTIONS (1)
  - Haemorrhage [None]
